FAERS Safety Report 9664417 (Version 2)
Quarter: 2013Q4

REPORT INFORMATION
  Report Type: Spontaneous
  Country: IL (occurrence: IL)
  Receive Date: 20131101
  Receipt Date: 20131213
  Transmission Date: 20140711
  Serious: Yes (Hospitalization, Other)
  Sender: FDA-Public Use
  Company Number: IL-INCYTE CORPORATION-2013IN002575

PATIENT
  Age: 73 Year
  Sex: Female

DRUGS (1)
  1. JAKAVI [Suspect]
     Indication: MYELOFIBROSIS
     Dosage: 15 MG, TWICE A DAY
     Route: 048
     Dates: start: 20130801

REACTIONS (2)
  - Acute myeloid leukaemia [None]
  - Pancytopenia [Unknown]
